FAERS Safety Report 4315370-2 (Version None)
Quarter: 2004Q1

REPORT INFORMATION
  Report Type: 
  Country: None (occurrence: None)
  Receive Date: 20040309
  Receipt Date: 20040227
  Transmission Date: 20041129
  Serious: Yes (Life-Threatening, Hospitalization, Other)
  Sender: FDA-Public Use
  Company Number: FR-JNJFOC-20030705386

PATIENT
  Age: 51 Year
  Sex: Male
  Weight: 85 kg

DRUGS (4)
  1. REMICADE [Suspect]
     Indication: ANKYLOSING SPONDYLITIS
     Dosage: 420 MG 1 IN 1 DAY INTRAVENOUS
     Route: 042
     Dates: start: 20030602, end: 20030602
  2. REMICADE [Suspect]
     Indication: ANKYLOSING SPONDYLITIS
     Dosage: 420 MG 1 IN 1 DAY INTRAVENOUS
     Route: 042
     Dates: start: 20030718, end: 20030718
  3. BUTAZOLIDIN [Concomitant]
  4. OMEPRAZOLE [Concomitant]

REACTIONS (1)
  - LUNG NEOPLASM MALIGNANT [None]
